FAERS Safety Report 17854811 (Version 4)
Quarter: 2021Q3

REPORT INFORMATION
  Report Type: Spontaneous
  Country: US (occurrence: US)
  Receive Date: 20200603
  Receipt Date: 20210716
  Transmission Date: 20211014
  Serious: No
  Sender: FDA-Public Use
  Company Number: US-PFIZER INC-2019352388

PATIENT
  Age: 72 Year

DRUGS (3)
  1. CELEBREX [Suspect]
     Active Substance: CELECOXIB
     Dosage: 200 MG, DAILY(TAKE 1 CAPSULE BY MOUTH DAILY)
     Route: 048
  2. CELEBREX [Suspect]
     Active Substance: CELECOXIB
     Indication: CORONARY ARTERY DISEASE
     Dosage: 200 MG, ALTERNATE DAY
     Route: 048
     Dates: start: 20190814
  3. CELEBREX [Suspect]
     Active Substance: CELECOXIB
     Dosage: 200 MG, DAILY(TAKE 1 CAPSULE BY MOUTH DAILY)
     Route: 048
     Dates: start: 20210420

REACTIONS (3)
  - Vision blurred [Unknown]
  - Off label use [Unknown]
  - Product dose omission issue [Unknown]
